FAERS Safety Report 7276554-7 (Version None)
Quarter: 2011Q1

REPORT INFORMATION
  Report Type: 
  Country: None (occurrence: None)
  Receive Date: 20110204
  Receipt Date: 20110124
  Transmission Date: 20110831
  Serious: Yes (Death)
  Sender: FDA-Public Use
  Company Number: JP-BAYER-2011-007401

PATIENT
  Age: 81 Year
  Sex: Male

DRUGS (1)
  1. ASPIRIN \^BAYER\^ (JP ASPIRIN) [Suspect]
     Route: 048

REACTIONS (1)
  - HEPATITIS FULMINANT [None]
